FAERS Safety Report 10285459 (Version 1)
Quarter: 2014Q3

REPORT INFORMATION
  Report Type: Spontaneous
  Country: US (occurrence: US)
  Receive Date: 20140709
  Receipt Date: 20140709
  Transmission Date: 20150326
  Serious: No
  Sender: FDA-Public Use
  Company Number: US-009507513-1406USA011617

PATIENT
  Age: 18 Year
  Sex: Female

DRUGS (1)
  1. IMPLANON [Suspect]
     Active Substance: ETONOGESTREL
     Dosage: 1 IMPLANON ROD
     Route: 059

REACTIONS (4)
  - Muscle spasms [Unknown]
  - Incorrect drug administration duration [Unknown]
  - Headache [Unknown]
  - Mood swings [Unknown]

NARRATIVE: CASE EVENT DATE: 20140609
